FAERS Safety Report 7913931-2 (Version None)
Quarter: 2011Q4

REPORT INFORMATION
  Report Type: 
  Country: None (occurrence: None)
  Receive Date: 20111115
  Receipt Date: 20111111
  Transmission Date: 20120403
  Serious: Yes (Hospitalization)
  Sender: FDA-Public Use
  Company Number: JP-PFIZER INC-2011277606

PATIENT
  Age: 70 Year
  Sex: Female

DRUGS (6)
  1. ZOLOFT [Suspect]
     Indication: DEPRESSION
     Dosage: 25 MG /DAY
     Route: 048
     Dates: start: 20111020, end: 20110101
  2. GASMOTIN [Concomitant]
     Dosage: AS NEEDED
  3. ZOLOFT [Suspect]
     Dosage: 100 MG/DAY
     Route: 048
     Dates: start: 20111102, end: 20111101
  4. HALCION [Concomitant]
     Indication: SLEEP DISORDER
     Dosage: 0.125/ DAY
     Route: 048
  5. ZOLOFT [Suspect]
     Dosage: 50 MG/DAY
     Route: 048
     Dates: start: 20110101, end: 20111101
  6. DEPAS [Concomitant]
     Dosage: AS NEEDED

REACTIONS (4)
  - INAPPROPRIATE ANTIDIURETIC HORMONE SECRETION [None]
  - ALTERED STATE OF CONSCIOUSNESS [None]
  - THIRST [None]
  - CONSTIPATION [None]
